FAERS Safety Report 5867451-X (Version None)
Quarter: 2008Q3

REPORT INFORMATION
  Report Type: 
  Country: None (occurrence: None)
  Receive Date: 20080902
  Receipt Date: 20080902
  Transmission Date: 20090109
  Serious: Yes (Hospitalization, Other)
  Sender: FDA-Public Use
  Company Number: PHEH1996US09221

PATIENT
  Sex: Male
  Weight: 63.1 kg

DRUGS (6)
  1. NEORAL [Suspect]
     Route: 048
     Dates: start: 19951104
  2. PREDNISONE TAB [Concomitant]
  3. IMURAN [Concomitant]
  4. ZOCOR [Concomitant]
  5. BACTRIM DS [Concomitant]
  6. UROMAG (MAGNESIUM OXIDE) [Concomitant]

REACTIONS (2)
  - LUNG DISORDER [None]
  - LYMPHOMA [None]
